FAERS Safety Report 7976987-7 (Version None)
Quarter: 2011Q4

REPORT INFORMATION
  Report Type: 
  Country: None (occurrence: None)
  Receive Date: 20111213
  Receipt Date: 20111108
  Transmission Date: 20120403
  Serious: No
  Sender: FDA-Public Use
  Company Number: US-AMGEN-USASP2011058616

PATIENT
  Age: 63 Year
  Sex: Female
  Weight: 172 kg

DRUGS (16)
  1. JANUMET [Concomitant]
     Dosage: 50-1000
  2. LIPITOR [Concomitant]
     Dosage: 10 MG, UNK
  3. GLYBURIDE [Concomitant]
     Dosage: 5 MG, UNK
  4. POTASSIUM CHLORIDE [Concomitant]
     Dosage: 75 MG, UNK
  5. MULTIVITAMIN                       /00097801/ [Concomitant]
  6. DIOVAN [Concomitant]
     Dosage: 40 MG, UNK
  7. CALCIUM [Concomitant]
     Dosage: 500
  8. LEVOXYL [Concomitant]
     Dosage: 112 UNK, UNK
  9. PREDNISONE TAB [Concomitant]
     Dosage: 1 MG, UNK
  10. TOPROL-XL [Concomitant]
     Dosage: 25 MG, UNK
  11. LANTUS [Concomitant]
  12. BUMEX [Concomitant]
     Dosage: 0.5 MG, UNK
  13. FERROUS GLUCONATE [Concomitant]
     Dosage: 225 MG, UNK
  14. ENBREL [Suspect]
     Indication: RHEUMATOID ARTHRITIS
     Dosage: 50 MG, QWK
     Route: 058
     Dates: start: 20111019
  15. PRILOSEC [Concomitant]
     Dosage: 10 MG, UNK
  16. ASPIRIN [Concomitant]
     Dosage: 81 MG, UNK

REACTIONS (2)
  - INJECTION SITE PAIN [None]
  - INJECTION SITE ERYTHEMA [None]
